FAERS Safety Report 15426246 (Version 2)
Quarter: 2020Q3

REPORT INFORMATION
  Report Type: Report from Study
  Country: GB (occurrence: GB)
  Receive Date: 20180925
  Receipt Date: 20181016
  Transmission Date: 20201105
  Serious: Yes (Hospitalization)
  Sender: FDA-Public Use
  Company Number: GB-JNJFOC-20180922709

PATIENT
  Age: 64 Year
  Sex: Male

DRUGS (10)
  1. DARATUMUMAB [Suspect]
     Active Substance: DARATUMUMAB
     Indication: PLASMA CELL MYELOMA
     Dosage: DAY 1 OF EACH CYCLE
     Route: 042
     Dates: start: 20180724
  2. DARATUMUMAB [Suspect]
     Active Substance: DARATUMUMAB
     Indication: PLASMA CELL LEUKAEMIA
     Dosage: DAY 1 OF EACH CYCLE
     Route: 042
     Dates: start: 20180724
  3. BORTEZOMIB. [Suspect]
     Active Substance: BORTEZOMIB
     Indication: PLASMA CELL LEUKAEMIA
     Dosage: DAYS 1,4, 8,11 OF CYCLE
     Route: 058
     Dates: start: 20180724, end: 20180911
  4. CYCLOPHOSPHAMIDE. [Suspect]
     Active Substance: CYCLOPHOSPHAMIDE
     Indication: PLASMA CELL MYELOMA
     Dosage: DAYS 1 AND 8 OF CYCLE
     Route: 048
     Dates: start: 20180724
  5. DEXAMETHASONE. [Suspect]
     Active Substance: DEXAMETHASONE
     Indication: PLASMA CELL MYELOMA
     Dosage: DAYS 1, 4, 8, 11 OF CYCLE
     Route: 048
     Dates: start: 20180724, end: 20180911
  6. CYCLOPHOSPHAMIDE. [Suspect]
     Active Substance: CYCLOPHOSPHAMIDE
     Indication: PLASMA CELL LEUKAEMIA
     Dosage: DAYS 1 AND 8 OF CYCLE
     Route: 048
     Dates: start: 20180724
  7. LENALIDOMIDE [Suspect]
     Active Substance: LENALIDOMIDE
     Indication: PLASMA CELL LEUKAEMIA
     Dosage: DAYS 1?14 OF CYCLE
     Route: 048
     Dates: start: 20180724, end: 20180911
  8. DEXAMETHASONE. [Suspect]
     Active Substance: DEXAMETHASONE
     Indication: PLASMA CELL LEUKAEMIA
     Dosage: DAYS 1, 4, 8, 11 OF CYCLE
     Route: 048
     Dates: start: 20180724, end: 20180911
  9. BORTEZOMIB. [Suspect]
     Active Substance: BORTEZOMIB
     Indication: PLASMA CELL MYELOMA
     Dosage: DAYS 1,4, 8,11 OF CYCLE
     Route: 058
     Dates: start: 20180724, end: 20180911
  10. LENALIDOMIDE [Suspect]
     Active Substance: LENALIDOMIDE
     Indication: PLASMA CELL MYELOMA
     Dosage: DAYS 1?14 OF CYCLE
     Route: 048
     Dates: start: 20180724, end: 20180911

REACTIONS (1)
  - Pancreatitis chronic [Recovered/Resolved]

NARRATIVE: CASE EVENT DATE: 20180908
